FAERS Safety Report 6285419-9 (Version None)
Quarter: 2009Q3

REPORT INFORMATION
  Report Type: 
  Country: None (occurrence: None)
  Receive Date: 20090723
  Receipt Date: 20090714
  Transmission Date: 20100115
  Serious: Yes (Hospitalization)
  Sender: FDA-Public Use
  Company Number: 2009SP015457

PATIENT
  Age: 41 Year
  Sex: Female
  Weight: 82 kg

DRUGS (1)
  1. DESLORATADINE [Suspect]
     Indication: HYPERSENSITIVITY
     Dosage: 5 MG
     Dates: start: 20090615, end: 20090615

REACTIONS (3)
  - FALL [None]
  - HERPES ZOSTER OPHTHALMIC [None]
  - MYOCARDIAL INFARCTION [None]
